FAERS Safety Report 10678028 (Version 1)
Quarter: 2014Q4

REPORT INFORMATION
  Report Type: Spontaneous
  Country: US (occurrence: None)
  Receive Date: 20141223
  Receipt Date: 20141223
  Transmission Date: 20150529
  Serious: Yes (Other)
  Sender: FDA-Public Use
  Company Number: 2014-US-012848

PATIENT
  Sex: Female

DRUGS (1)
  1. XYREM [Suspect]
     Active Substance: SODIUM OXYBATE
     Indication: SOMNOLENCE
     Route: 048
     Dates: start: 201409, end: 2014

REACTIONS (4)
  - Initial insomnia [None]
  - Fatigue [None]
  - Off label use [None]
  - Catatonia [None]

NARRATIVE: CASE EVENT DATE: 2014
